FAERS Safety Report 5978429-X (Version None)
Quarter: 2008Q4

REPORT INFORMATION
  Report Type: 
  Country: None (occurrence: None)
  Receive Date: 20081204
  Receipt Date: 20081126
  Transmission Date: 20090506
  Serious: Yes (Hospitalization)
  Sender: FDA-Public Use
  Company Number: US-ELI_LILLY_AND_COMPANY-US200812000242

PATIENT
  Sex: Male

DRUGS (4)
  1. PEMETREXED [Suspect]
     Indication: NON-SMALL CELL LUNG CANCER
     Dosage: 500 MG/M2, OTHER
     Route: 042
     Dates: start: 20080731
  2. FOLIC ACID [Concomitant]
     Dates: start: 20080731
  3. VITAMIN B-12 [Concomitant]
     Dates: start: 20080731
  4. DEXAMETHASONE [Concomitant]
     Dates: start: 20080731

REACTIONS (3)
  - CATHETER RELATED INFECTION [None]
  - INFECTION [None]
  - SYNCOPE [None]
